FAERS Safety Report 8608146-9 (Version None)
Quarter: 2012Q3

REPORT INFORMATION
  Report Type: 
  Country: None (occurrence: None)
  Receive Date: 20120809
  Receipt Date: 20120809
  Transmission Date: 20120928
  Serious: No
  Sender: FDA-Public Use
  Company Number: None

PATIENT
  Sex: Female
  Weight: 70.3075 kg

DRUGS (1)
  1. ZETIA [Suspect]
     Indication: BLOOD CHOLESTEROL INCREASED
     Dosage: 1 TIME A DAY PO
     Route: 048
     Dates: start: 20120803, end: 20120806

REACTIONS (5)
  - MYALGIA [None]
  - GAIT DISTURBANCE [None]
  - ASTHENIA [None]
  - NAUSEA [None]
  - FATIGUE [None]
